FAERS Safety Report 5117477-9 (Version None)
Quarter: 2006Q3

REPORT INFORMATION
  Report Type: 
  Country: None (occurrence: None)
  Receive Date: 20060929
  Receipt Date: 20060920
  Transmission Date: 20061208
  Serious: Yes (Death)
  Sender: FDA-Public Use
  Company Number: JP-AVENTIS-200612914JP

PATIENT

DRUGS (3)
  1. TAXOTERE [Suspect]
     Indication: NON-SMALL CELL LUNG CANCER
  2. CBDCA [Concomitant]
     Indication: NON-SMALL CELL LUNG CANCER
  3. RADIOTHERAPY [Concomitant]
     Indication: NON-SMALL CELL LUNG CANCER
     Dosage: DOSE: 40GY/TOTAL

REACTIONS (1)
  - RADIATION PNEUMONITIS [None]
